FAERS Safety Report 5696385-9 (Version None)
Quarter: 2008Q2

REPORT INFORMATION
  Report Type: 
  Country: None (occurrence: None)
  Receive Date: 20080408
  Receipt Date: 20080328
  Transmission Date: 20081010
  Serious: Yes (Hospitalization)
  Sender: FDA-Public Use
  Company Number: FR-PFIZER INC-2008028613

PATIENT
  Sex: Female

DRUGS (11)
  1. ZOLOFT [Suspect]
     Indication: DEPRESSION
     Dosage: TEXT:2 DOSE FORMS-FREQ:DAILY
     Route: 048
  2. CORDARONE [Interacting]
     Indication: ISCHAEMIC CARDIOMYOPATHY
     Dosage: TEXT:200MG
     Route: 048
  3. SINTROM [Interacting]
     Indication: ARRHYTHMIA
     Dosage: TEXT:0.25 DOSE FORM-FREQ:DAILY
     Route: 048
  4. BURINEX [Concomitant]
     Indication: ISCHAEMIC CARDIOMYOPATHY
     Route: 048
  5. CELECTOL [Concomitant]
     Indication: ISCHAEMIC CARDIOMYOPATHY
     Dosage: TEXT:1 DOSE FORM-FREQ:DAILY
     Route: 048
  6. OROCAL VITAMIN D [Concomitant]
     Dosage: TEXT:2 DOSE FORMS-FREQ:DAILY
     Route: 048
  7. TEMESTA [Concomitant]
     Dosage: TEXT:4MG-FREQ:DAILY
     Route: 048
  8. NOCTRAN 10 [Concomitant]
     Dosage: TEXT:1 DOSE FORM-FREQ:DAILY
     Route: 048
  9. LANZOR [Concomitant]
     Dosage: TEXT:1 DOSE FORM-FREQ:DAILY
     Route: 048
  10. DISCOTRINE [Concomitant]
     Dosage: TEXT:1 DOSE FORM-FREQ:DAILY
     Route: 048
  11. ADANCOR [Concomitant]
     Indication: ISCHAEMIC CARDIOMYOPATHY
     Dosage: TEXT:20MG-FREQ:DAILY
     Route: 048

REACTIONS (2)
  - DRUG INTERACTION [None]
  - INTRA-ABDOMINAL HAEMATOMA [None]
